FAERS Safety Report 21095725 (Version 1)
Quarter: 2022Q3

REPORT INFORMATION
  Report Type: Spontaneous
  Country: ES (occurrence: ES)
  Receive Date: 20220718
  Receipt Date: 20220718
  Transmission Date: 20221027
  Serious: Yes (Death, Other)
  Sender: FDA-Public Use
  Company Number: ES-SHIONOGI, INC-2022000620

PATIENT
  Age: 57 Year
  Sex: Male

DRUGS (4)
  1. FETROJA [Suspect]
     Active Substance: CEFIDEROCOL SULFATE TOSYLATE
     Indication: Respiratory tract infection
     Dosage: 1 G,  EVERY 12 HOURS
     Route: 065
  2. FETROJA [Suspect]
     Active Substance: CEFIDEROCOL SULFATE TOSYLATE
     Indication: Pseudomonas infection
  3. FETROJA [Suspect]
     Active Substance: CEFIDEROCOL SULFATE TOSYLATE
     Indication: Drug resistance
  4. COLISTIN [Concomitant]
     Active Substance: COLISTIN
     Indication: Product used for unknown indication

REACTIONS (2)
  - Colitis ischaemic [Fatal]
  - Clostridium difficile infection [Not Recovered/Not Resolved]
